FAERS Safety Report 17845077 (Version 1)
Quarter: 2020Q2

REPORT INFORMATION
  Report Type: Spontaneous
  Country: US (occurrence: US)
  Receive Date: 20200601
  Receipt Date: 20200601
  Transmission Date: 20200714
  Serious: No
  Sender: FDA-Public Use
  Company Number: US-AUROBINDO-AUR-APL-2019-022341

PATIENT

DRUGS (2)
  1. LISINOPRIL. [Concomitant]
     Active Substance: LISINOPRIL
     Indication: PRODUCT USED FOR UNKNOWN INDICATION
     Route: 065
  2. HYDROCODONE BITARTRATE AND ACETAMINOPHEN [Suspect]
     Active Substance: ACETAMINOPHEN\HYDROCODONE BITARTRATE
     Indication: PRODUCT USED FOR UNKNOWN INDICATION
     Dosage: UNK
     Route: 065

REACTIONS (11)
  - Depression [Unknown]
  - Feeling abnormal [Unknown]
  - Product substitution issue [Unknown]
  - Headache [Unknown]
  - Dizziness [Unknown]
  - Pain in extremity [Unknown]
  - Anger [Unknown]
  - Depressed mood [Unknown]
  - Nausea [Unknown]
  - Skin burning sensation [Unknown]
  - Drug ineffective [Unknown]
